FAERS Safety Report 5575245-8 (Version None)
Quarter: 2007Q4

REPORT INFORMATION
  Report Type: 
  Country: None (occurrence: None)
  Receive Date: 20071227
  Receipt Date: 20071215
  Transmission Date: 20080405
  Serious: Yes (Other)
  Sender: FDA-Public Use
  Company Number: US-PFIZER INC-2007087637

PATIENT
  Sex: Male
  Weight: 99.8 kg

DRUGS (7)
  1. CHANTIX [Suspect]
     Indication: SMOKING CESSATION THERAPY
  2. GEODON [Suspect]
     Indication: BIPOLAR DISORDER
  3. XANAX [Concomitant]
  4. LORTAB [Concomitant]
  5. NAPROSYN [Concomitant]
  6. SPIRIVA [Concomitant]
  7. TOPAMAX [Concomitant]

REACTIONS (7)
  - ABDOMINAL PAIN [None]
  - CONSTIPATION [None]
  - DYSPEPSIA [None]
  - HAEMATOCHEZIA [None]
  - NAUSEA [None]
  - SOMNOLENCE [None]
  - ULCER [None]
